FAERS Safety Report 8285425 (Version 5)
Quarter: 2013Q3

REPORT INFORMATION
  Report Type: Spontaneous
  Country: US (occurrence: US)
  Receive Date: 20111213
  Receipt Date: 20130912
  Transmission Date: 20140515
  Serious: Yes (Hospitalization, Congenital Anomaly)
  Sender: FDA-Public Use
  Company Number: US-JNJFOC-20111203822

PATIENT
  Sex: Male

DRUGS (12)
  1. TOPAMAX [Suspect]
     Indication: FOETAL EXPOSURE DURING PREGNANCY
     Route: 064
     Dates: start: 200805, end: 200905
  2. EFFEXOR [Suspect]
     Indication: FOETAL EXPOSURE DURING PREGNANCY
     Route: 064
  3. SEROQUEL [Suspect]
     Indication: FOETAL EXPOSURE DURING PREGNANCY
     Route: 064
  4. XANAX [Suspect]
     Indication: FOETAL EXPOSURE DURING PREGNANCY
     Route: 064
  5. TRAZODONE [Suspect]
     Indication: FOETAL EXPOSURE DURING PREGNANCY
     Route: 064
  6. GABAPENTIN [Suspect]
     Indication: FOETAL EXPOSURE DURING PREGNANCY
     Route: 064
  7. PAXIL [Suspect]
     Indication: FOETAL EXPOSURE DURING PREGNANCY
     Route: 064
  8. AMBIEN [Suspect]
     Indication: FOETAL EXPOSURE DURING PREGNANCY
     Route: 064
  9. OMEPRAZOLE [Suspect]
     Indication: FOETAL EXPOSURE DURING PREGNANCY
     Route: 064
  10. NEXIUM [Suspect]
     Indication: FOETAL EXPOSURE DURING PREGNANCY
     Route: 064
  11. EFFEXOR XR [Suspect]
     Indication: PRODUCT USED FOR UNKNOWN INDICATION
     Route: 064
  12. PRENATAL VITAMINS [Concomitant]
     Indication: FOETAL EXPOSURE DURING PREGNANCY
     Route: 064

REACTIONS (7)
  - Patent ductus arteriosus [Unknown]
  - Pulmonary valve stenosis [Recovering/Resolving]
  - Premature baby [Unknown]
  - Low birth weight baby [Unknown]
  - Tongue disorder [Unknown]
  - Ankyloglossia congenital [Unknown]
  - Anxiety [Unknown]
